FAERS Safety Report 13386546 (Version 1)
Quarter: 2017Q1

REPORT INFORMATION
  Report Type: Spontaneous
  Country: BE (occurrence: BE)
  Receive Date: 20170330
  Receipt Date: 20170330
  Transmission Date: 20170429
  Serious: Yes (Other)
  Sender: FDA-Public Use
  Company Number: BE-BAYER-2017-055110

PATIENT
  Age: 68 Year
  Sex: Male

DRUGS (9)
  1. TRITACE [Concomitant]
     Active Substance: RAMIPRIL
  2. XOFIGO [Suspect]
     Active Substance: RADIUM RA-223 DICHLORIDE
     Indication: HORMONE-REFRACTORY PROSTATE CANCER
     Dosage: UNK
     Route: 042
     Dates: start: 20170314
  3. DIAMOX SEQUELS [Concomitant]
     Active Substance: ACETAZOLAMIDE
     Dosage: 250 MG, UNK
  4. NOBIRETIC [Concomitant]
     Dosage: 5 MG, UNK
  5. GLURENORM [Concomitant]
  6. ABIRATERONE [Concomitant]
     Active Substance: ABIRATERONE
     Dosage: 250 MG, QID
  7. DEXAMETHASONE. [Concomitant]
     Active Substance: DEXAMETHASONE
     Dosage: 5 MG, UNK
  8. ZOLADEX [Concomitant]
     Active Substance: GOSERELIN ACETATE
     Dosage: 10.8 MG, Q3MON
  9. OROCAL [Concomitant]
     Active Substance: CALCIUM CARBONATE

REACTIONS (8)
  - Malaise [None]
  - Food aversion [None]
  - Dehydration [Not Recovered/Not Resolved]
  - Hypotension [None]
  - Fluid intake reduced [None]
  - Renal failure [None]
  - Diarrhoea [None]
  - Nausea [None]

NARRATIVE: CASE EVENT DATE: 201703
